FAERS Safety Report 9435484 (Version 1)
Quarter: 2013Q3

REPORT INFORMATION
  Report Type: Spontaneous
  Country: US (occurrence: US)
  Receive Date: 20130801
  Receipt Date: 20130801
  Transmission Date: 20140515
  Serious: No
  Sender: FDA-Public Use
  Company Number: US-009507513-1307USA014296

PATIENT
  Sex: Female

DRUGS (1)
  1. IMPLANON [Suspect]
     Dosage: 1 DF, UNK
     Route: 059
     Dates: start: 20090724, end: 20130724

REACTIONS (3)
  - Incorrect drug administration duration [Recovered/Resolved]
  - Obesity [Unknown]
  - Medical device complication [Recovered/Resolved]
